FAERS Safety Report 23765461 (Version 3)
Quarter: 2024Q2

REPORT INFORMATION
  Report Type: Report from Study
  Country: US (occurrence: US)
  Receive Date: 20240420
  Receipt Date: 20240626
  Transmission Date: 20240716
  Serious: Yes (Hospitalization, Other)
  Sender: FDA-Public Use
  Company Number: US-ABBVIE-5726024

PATIENT
  Sex: Male

DRUGS (1)
  1. HUMIRA [Suspect]
     Active Substance: ADALIMUMAB
     Indication: Rheumatoid arthritis
     Dosage: FORM STRENGTH: 40 MILLIGRAM
     Route: 058
     Dates: start: 20010104, end: 20240404

REACTIONS (4)
  - Cerebral haemorrhage [Not Recovered/Not Resolved]
  - Osteomyelitis [Unknown]
  - Head injury [Unknown]
  - Device issue [Unknown]

NARRATIVE: CASE EVENT DATE: 20240101
